FAERS Safety Report 4661545-2 (Version None)
Quarter: 2005Q2

REPORT INFORMATION
  Report Type: 
  Country: None (occurrence: None)
  Receive Date: 20050502
  Receipt Date: 20050107
  Transmission Date: 20051028
  Serious: No
  Sender: FDA-Public Use
  Company Number: 200510183US

PATIENT
  Age: 74 Year
  Sex: Male

DRUGS (2)
  1. KETEK [Suspect]
     Indication: INFECTION
     Dosage: 800 MG PO
     Route: 048
  2. KEFLEX [Suspect]
     Dosage: 500 MG PO
     Route: 048

REACTIONS (1)
  - MEDICATION ERROR [None]
